FAERS Safety Report 19961470 (Version 2)
Quarter: 2021Q4

REPORT INFORMATION
  Report Type: Spontaneous
  Country: None (occurrence: GB)
  Receive Date: 20211017
  Receipt Date: 20211125
  Transmission Date: 20220303
  Serious: Yes (Other)
  Sender: FDA-Public Use
  Company Number: GB-ASCEND THERAPEUTICS US, LLC-2120642

PATIENT
  Age: 55 Year
  Sex: Female
  Weight: 158.75 kg

DRUGS (4)
  1. ESTROGEL [Suspect]
     Active Substance: ESTRADIOL
     Indication: Menopausal symptoms
     Route: 061
     Dates: start: 20200220, end: 20210625
  2. ESTROGEL [Suspect]
     Active Substance: ESTRADIOL
  3. ESTRADIOL [Suspect]
     Active Substance: ESTRADIOL
     Route: 061
     Dates: start: 20200220, end: 20210625
  4. CLENIL MODULITE(BECLOMETASONE DIPROPIONATE) [Concomitant]
     Route: 065

REACTIONS (14)
  - Psychiatric symptom [Not Recovered/Not Resolved]
  - Emotional disorder [Not Recovered/Not Resolved]
  - Tearfulness [Not Recovered/Not Resolved]
  - Anxiety [Not Recovered/Not Resolved]
  - Disturbance in attention [Not Recovered/Not Resolved]
  - Arthralgia [Not Recovered/Not Resolved]
  - Night sweats [Not Recovered/Not Resolved]
  - Palpitations [Not Recovered/Not Resolved]
  - Dyspnoea [Not Recovered/Not Resolved]
  - Fatigue [Not Recovered/Not Resolved]
  - Pruritus [Not Recovered/Not Resolved]
  - Headache [Not Recovered/Not Resolved]
  - Drug ineffective [Not Recovered/Not Resolved]
  - Menopausal symptoms [Not Recovered/Not Resolved]

NARRATIVE: CASE EVENT DATE: 20210602
